FAERS Safety Report 23898615 (Version 1)
Quarter: 2024Q2

REPORT INFORMATION
  Report Type: Spontaneous
  Country: US (occurrence: US)
  Receive Date: 20240525
  Receipt Date: 20240525
  Transmission Date: 20240716
  Serious: No
  Sender: FDA-Public Use
  Company Number: US-TEVA-VS-3198287

PATIENT
  Age: 44 Year
  Sex: Male

DRUGS (1)
  1. AUSTEDO [Suspect]
     Active Substance: DEUTETRABENAZINE
     Indication: Huntington^s disease
     Dosage: 12 MG, 2 TABLET BY MOUTH EVERY 12 HOURS
     Route: 048

REACTIONS (2)
  - Gastrointestinal tube insertion [Unknown]
  - Wrong technique in product usage process [Unknown]
